FAERS Safety Report 8721401 (Version 4)
Quarter: 2014Q4

REPORT INFORMATION
  Report Type: Spontaneous
  Country: US (occurrence: US)
  Receive Date: 20120813
  Receipt Date: 20141201
  Transmission Date: 20150529
  Serious: Yes (Death, Hospitalization)
  Sender: FDA-Public Use
  Company Number: US-SANOFI-AVENTIS-2012SA058001

PATIENT
  Age: 74 Year
  Sex: Male
  Weight: 58.96 kg

DRUGS (9)
  1. ASPIRIN. [Concomitant]
     Active Substance: ASPIRIN
     Dates: end: 20120214
  2. MULTIVITAMINS [Concomitant]
     Active Substance: VITAMINS
     Dosage: TAKE BY PEG TUBE
     Route: 048
  3. FISH OIL [Concomitant]
     Active Substance: FISH OIL
     Dosage: TAKE BY PEG TUBE.
     Route: 048
  4. FLUVIRIN [Concomitant]
     Dates: start: 20101113
  5. SIMVASTATIN. [Concomitant]
     Active Substance: SIMVASTATIN
     Route: 048
     Dates: start: 20120103
  6. PLAVIX [Suspect]
     Active Substance: CLOPIDOGREL BISULFATE
     Indication: TRANSIENT ISCHAEMIC ATTACK
     Route: 048
     Dates: start: 20120103, end: 20120214
  7. VANCOMYCIN [Concomitant]
     Active Substance: VANCOMYCIN
  8. FLUVIRIN [Concomitant]
     Dates: start: 20111024
  9. ZOSYN [Concomitant]
     Active Substance: PIPERACILLIN SODIUM\TAZOBACTAM SODIUM

REACTIONS (1)
  - Haemorrhage intracranial [Fatal]

NARRATIVE: CASE EVENT DATE: 20120201
